FAERS Safety Report 20454815 (Version 1)
Quarter: 2022Q1

REPORT INFORMATION
  Report Type: Spontaneous
  Country: GB (occurrence: GB)
  Receive Date: 20220210
  Receipt Date: 20220210
  Transmission Date: 20220424
  Serious: Yes (Hospitalization, Other)
  Sender: FDA-Public Use
  Company Number: GB-002147023-NVSC2021GB265039

PATIENT
  Age: 12 Year
  Sex: Female
  Weight: 28 kg

DRUGS (25)
  1. TOPOTECAN HYDROCHLORIDE [Suspect]
     Active Substance: TOPOTECAN HYDROCHLORIDE
     Indication: Recurrent cancer
     Dosage: 0.76 MG/M2, QD (MAXIMUM 5 DAYS EVERY 21 DAYS)
     Route: 037
     Dates: start: 20211027
  2. TOPOTECAN HYDROCHLORIDE [Suspect]
     Active Substance: TOPOTECAN HYDROCHLORIDE
     Dosage: UNK
     Route: 065
     Dates: start: 20210705, end: 20210717
  3. TOPOTECAN HYDROCHLORIDE [Suspect]
     Active Substance: TOPOTECAN HYDROCHLORIDE
     Dosage: UNK
     Route: 065
     Dates: start: 20210104, end: 20210124
  4. CYCLOPHOSPHAMIDE [Suspect]
     Active Substance: CYCLOPHOSPHAMIDE
     Indication: Recurrent cancer
     Dosage: 250 MG/M2, QD (MAXIMUM 5 DAYS, EVERY 21 DAYS)
     Route: 037
     Dates: start: 20211027
  5. CYCLOPHOSPHAMIDE [Suspect]
     Active Substance: CYCLOPHOSPHAMIDE
     Dosage: UNK
     Route: 065
     Dates: start: 20210104, end: 20210124
  6. VENETOCLAX [Suspect]
     Active Substance: VENETOCLAX
     Indication: Recurrent cancer
     Dosage: 170 MG, QD
     Route: 048
     Dates: start: 20211025, end: 20211025
  7. VENETOCLAX [Suspect]
     Active Substance: VENETOCLAX
     Dosage: 350 MG, QD
     Route: 048
     Dates: start: 20211026
  8. COTRIMOXAZOLE [Concomitant]
     Active Substance: SULFAMETHOXAZOLE\TRIMETHOPRIM
     Indication: Infection
     Dosage: 360 MG (TIMES PER DAY ON MON/TUE)
     Route: 048
     Dates: start: 20211025
  9. CYCLIZINE [Concomitant]
     Active Substance: CYCLIZINE
     Indication: Antiemetic supportive care
     Dosage: 25 MG, QD
     Route: 048
     Dates: start: 20211031, end: 20211031
  10. CYCLIZINE [Concomitant]
     Active Substance: CYCLIZINE
     Dosage: 25 MG, TID
     Route: 048
     Dates: start: 20211027, end: 20211101
  11. DEXAMETHASONE [Concomitant]
     Active Substance: DEXAMETHASONE
     Indication: Prophylaxis
     Dosage: 4 MG, BID
     Route: 048
     Dates: start: 20211031, end: 20211031
  12. DEXAMETHASONE [Concomitant]
     Active Substance: DEXAMETHASONE
     Dosage: 4 MG, BID
     Route: 030
     Dates: start: 20211027, end: 20211101
  13. ETOPOSIDE [Concomitant]
     Active Substance: ETOPOSIDE
     Indication: Neuroblastoma
     Dosage: UNK
     Route: 065
     Dates: start: 20210507, end: 20210601
  14. ETOPOSIDE [Concomitant]
     Active Substance: ETOPOSIDE
     Dosage: UNK
     Route: 065
     Dates: start: 20131208, end: 20150101
  15. LANSOPRAZOLE [Concomitant]
     Active Substance: LANSOPRAZOLE
     Indication: Prophylaxis of nausea and vomiting
     Dosage: 15 MG, QD
     Route: 048
     Dates: start: 20211025
  16. LENOGRASTIM [Concomitant]
     Active Substance: LENOGRASTIM
     Indication: Prophylaxis
     Dosage: UNK UNK, QD (5 UG/KG)
     Route: 058
     Dates: start: 20211122
  17. MAGNESIUM GLYCEROPHOSPHATE [Concomitant]
     Active Substance: MAGNESIUM GLYCEROPHOSPHATE
     Indication: Prophylaxis
     Dosage: 15 ML, TID
     Route: 048
     Dates: start: 20210925
  18. NYSTATIN [Concomitant]
     Active Substance: NYSTATIN
     Indication: Oral candidiasis
     Dosage: 1 DOSAGE FORM, BID
     Route: 061
     Dates: start: 20211116, end: 20211213
  19. ONDANSETRON [Concomitant]
     Active Substance: ONDANSETRON
     Indication: Prophylaxis of nausea and vomiting
     Dosage: 5 MG, TID
     Route: 042
     Dates: start: 20211025, end: 20211101
  20. ONDANSETRON [Concomitant]
     Active Substance: ONDANSETRON
     Dosage: 4 MG, QID (16 MG)
     Route: 065
     Dates: start: 20211211, end: 20211214
  21. ONDANSETRON [Concomitant]
     Active Substance: ONDANSETRON
     Dosage: 4 MG, TID (12 MG)
     Route: 065
     Dates: start: 20211130
  22. ONDANSETRON [Concomitant]
     Active Substance: ONDANSETRON
     Dosage: 4 MG, QD (AS REQUIRED)
     Route: 048
     Dates: start: 20211025, end: 20211101
  23. PEGFILGRASTIM [Concomitant]
     Active Substance: PEGFILGRASTIM
     Indication: Product used for unknown indication
     Dosage: 0.25 ML, QD (AS PER TREA
     Route: 037
     Dates: start: 20211101, end: 20211101
  24. POTASSIUM [Concomitant]
     Active Substance: POTASSIUM
     Indication: Hypokalaemia
     Dosage: UNK, TID
     Route: 048
     Dates: start: 20211030, end: 20211106
  25. TRIMETHOPRIM [Concomitant]
     Active Substance: TRIMETHOPRIM
     Indication: Prophylaxis
     Dosage: 100 MG (ONCE PER DAY ON SUN WED THU FRI SAT)
     Route: 048
     Dates: start: 20211027

REACTIONS (6)
  - Body temperature increased [Unknown]
  - Febrile neutropenia [Not Recovered/Not Resolved]
  - Lymphocyte count decreased [Unknown]
  - Platelet count decreased [Unknown]
  - White blood cell count decreased [Unknown]
  - Off label use [Unknown]

NARRATIVE: CASE EVENT DATE: 20211108
